FAERS Safety Report 6314478-X (Version None)
Quarter: 2009Q3

REPORT INFORMATION
  Report Type: 
  Country: None (occurrence: None)
  Receive Date: 20090817
  Receipt Date: 20090817
  Transmission Date: 20100115
  Serious: No
  Sender: FDA-Public Use
  Company Number: None

PATIENT
  Age: 70 Year
  Sex: Female
  Weight: 74.3899 kg

DRUGS (1)
  1. ACTONEL [Suspect]
     Indication: OSTEOPENIA
     Dosage: 150 MG 1 ONCE A MONTH PO, FIRST TIME
     Route: 048
     Dates: start: 20090807, end: 20090807

REACTIONS (6)
  - ARTHRALGIA [None]
  - CHEST PAIN [None]
  - FEAR [None]
  - NONSPECIFIC REACTION [None]
  - OEDEMA PERIPHERAL [None]
  - PAIN IN EXTREMITY [None]
